FAERS Safety Report 19021075 (Version 1)
Quarter: 2021Q1

REPORT INFORMATION
  Report Type: Spontaneous
  Country: US (occurrence: US)
  Receive Date: 20210317
  Receipt Date: 20210317
  Transmission Date: 20210420
  Serious: No
  Sender: FDA-Public Use
  Company Number: US-ELI_LILLY_AND_COMPANY-US202103008317

PATIENT
  Sex: Female

DRUGS (2)
  1. FULVESTRANT. [Concomitant]
     Active Substance: FULVESTRANT
     Indication: BREAST CANCER
  2. VERZENIO [Suspect]
     Active Substance: ABEMACICLIB
     Indication: BREAST CANCER
     Dosage: 150 MG, BID
     Route: 048
     Dates: start: 202002

REACTIONS (1)
  - Swollen tongue [Not Recovered/Not Resolved]
